FAERS Safety Report 25100035 (Version 1)
Quarter: 2025Q1

REPORT INFORMATION
  Report Type: Spontaneous
  Country: US (occurrence: None)
  Receive Date: 20250319
  Receipt Date: 20250319
  Transmission Date: 20250408
  Serious: No
  Sender: FDA-CTU
  Company Number: None

PATIENT
  Age: 66 Year
  Sex: Female
  Weight: 58.5 kg

DRUGS (7)
  1. SINGULAIR [Suspect]
     Active Substance: MONTELUKAST SODIUM
     Indication: Rhinitis allergic
     Dosage: OTHER QUANTITY : 1 TABLET(S);?FREQUENCY : DAILY;?
     Route: 048
  2. MONTELUKAST [Concomitant]
     Active Substance: MONTELUKAST
  3. VELSICARE [Concomitant]
  4. ZYRTEC [Concomitant]
     Active Substance: CETIRIZINE HYDROCHLORIDE
  5. FLONASE [Concomitant]
     Active Substance: FLUTICASONE PROPIONATE
  6. BEET ROOT GUMMIES [Concomitant]
  7. BIOTIN [Concomitant]
     Active Substance: BIOTIN

REACTIONS (7)
  - Nightmare [None]
  - Anger [None]
  - Irritability [None]
  - Anxiety [None]
  - Depression [None]
  - Affect lability [None]
  - Feeling abnormal [None]

NARRATIVE: CASE EVENT DATE: 20250319
